FAERS Safety Report 11127652 (Version 9)
Quarter: 2016Q4

REPORT INFORMATION
  Report Type: Spontaneous
  Country: US (occurrence: US)
  Receive Date: 20150521
  Receipt Date: 20161115
  Transmission Date: 20170206
  Serious: Yes (Hospitalization, Disabling)
  Sender: FDA-Public Use
  Company Number: US-JNJFOC-20150507413

PATIENT
  Age: 57 Year
  Sex: Male
  Weight: 102.06 kg

DRUGS (13)
  1. SEROQUEL [Concomitant]
     Active Substance: QUETIAPINE FUMARATE
     Indication: SCHIZOPHRENIA
     Route: 065
     Dates: start: 2008
  2. POTASSIUM [Concomitant]
     Active Substance: POTASSIUM
     Indication: BLOOD POTASSIUM DECREASED
     Route: 065
     Dates: start: 2014
  3. INVEGA SUSTENNA [Suspect]
     Active Substance: PALIPERIDONE PALMITATE
     Indication: PSYCHOTIC DISORDER
     Route: 042
     Dates: start: 20141129, end: 20141129
  4. INVEGA SUSTENNA [Suspect]
     Active Substance: PALIPERIDONE PALMITATE
     Indication: SCHIZOPHRENIA
     Route: 042
     Dates: start: 20141129, end: 20141129
  5. SEROQUEL [Concomitant]
     Active Substance: QUETIAPINE FUMARATE
     Indication: MENTAL DISORDER
     Route: 065
     Dates: start: 2008
  6. COLACE [Concomitant]
     Active Substance: DOCUSATE SODIUM
     Indication: CONSTIPATION
     Route: 065
     Dates: start: 1980
  7. TAMSULOSIN [Concomitant]
     Active Substance: TAMSULOSIN
     Indication: SCHIZOPHRENIA
     Route: 065
     Dates: start: 2014
  8. PROPRANOLOL [Concomitant]
     Active Substance: PROPRANOLOL\PROPRANOLOL HYDROCHLORIDE
     Indication: SCHIZOPHRENIA
     Route: 065
     Dates: start: 1980
  9. PROPRANOLOL [Concomitant]
     Active Substance: PROPRANOLOL\PROPRANOLOL HYDROCHLORIDE
     Indication: SCHIZOPHRENIA
     Route: 065
     Dates: start: 2005
  10. POTASSIUM [Concomitant]
     Active Substance: POTASSIUM
     Indication: STRESS URINARY INCONTINENCE
     Route: 065
     Dates: start: 2014
  11. BACLOFEN. [Concomitant]
     Active Substance: BACLOFEN
     Indication: AKATHISIA
     Route: 065
     Dates: start: 2008
  12. LASIX [Concomitant]
     Active Substance: FUROSEMIDE
     Indication: OEDEMA
     Route: 065
     Dates: start: 2014
  13. TAMSULOSIN [Concomitant]
     Active Substance: TAMSULOSIN
     Indication: STRESS URINARY INCONTINENCE
     Route: 065
     Dates: start: 2014

REACTIONS (9)
  - Intervertebral disc disorder [Unknown]
  - Fall [Recovered/Resolved]
  - Mental disorder [Not Recovered/Not Resolved]
  - Paralysis [Recovered/Resolved]
  - Feeling abnormal [Not Recovered/Not Resolved]
  - Stress urinary incontinence [Not Recovered/Not Resolved]
  - Adverse drug reaction [Unknown]
  - Hospitalisation [Unknown]
  - Incorrect route of drug administration [Unknown]

NARRATIVE: CASE EVENT DATE: 20141130
